FAERS Safety Report 7830561-1 (Version None)
Quarter: 2011Q4

REPORT INFORMATION
  Report Type: 
  Country: None (occurrence: None)
  Receive Date: 20111021
  Receipt Date: 20111017
  Transmission Date: 20120403
  Serious: Yes (Other)
  Sender: FDA-Public Use
  Company Number: DE-AMGEN-DEUSP2011053394

PATIENT
  Sex: Female
  Weight: 53 kg

DRUGS (2)
  1. EXEMESTANE [Concomitant]
     Indication: HORMONE LEVEL ABNORMAL
  2. PROLIA [Suspect]
     Indication: PROPHYLAXIS
     Dosage: UNK, Q6MO
     Dates: start: 20110908

REACTIONS (3)
  - SKIN INFECTION [None]
  - SECRETION DISCHARGE [None]
  - INFLAMMATION [None]
